FAERS Safety Report 4541094-2 (Version None)
Quarter: 2004Q4

REPORT INFORMATION
  Report Type: 
  Country: None (occurrence: None)
  Receive Date: 20041228
  Receipt Date: 20041213
  Transmission Date: 20050328
  Serious: Yes (Hospitalization)
  Sender: FDA-Public Use
  Company Number: F01200403974

PATIENT
  Sex: 0

DRUGS (3)
  1. (OXALIPLATIN) - SOLUTION - 85 MG/M2 [Suspect]
     Indication: COLORECTAL CANCER METASTATIC
     Dosage: 85 MG/M2 Q2W INTRAVENOUS NOS
     Route: 042
  2. FLUOROURACIL [Suspect]
     Dosage: 500 MG/M2 IV BOLUS ON DAY 1 AND DAY 2 OVER 3 MIN, Q2W INTRAVENOUS BOLUS
     Route: 040
  3. LEUCOVORIN - SOLUTION - 60 MG/M2 [Suspect]
     Dosage: 60 MG/M2 IV BOLUS ON DAY 1 AND DAY 2 OVER 3 MIN, Q2W INTRAVENOUS BOLUS
     Route: 040

REACTIONS (2)
  - NEPHROPATHY TOXIC [None]
  - RENAL DISORDER [None]
